FAERS Safety Report 18684572 (Version 6)
Quarter: 2021Q1

REPORT INFORMATION
  Report Type: Spontaneous
  Country: US (occurrence: US)
  Receive Date: 20201230
  Receipt Date: 20210224
  Transmission Date: 20210419
  Serious: Yes (Hospitalization)
  Sender: FDA-Public Use
  Company Number: US-UNITED THERAPEUTICS-UNT-2020-020180

PATIENT
  Age: 31 Year
  Sex: Female
  Weight: 84.81 kg

DRUGS (5)
  1. REMODULIN [Suspect]
     Active Substance: TREPROSTINIL
     Dosage: 0.074 ?G/KG, CONTINUING
     Route: 041
  2. REMODULIN [Suspect]
     Active Substance: TREPROSTINIL
     Dosage: 0.072 ?G/KG, CONTINUING
     Route: 041
     Dates: start: 20210217
  3. REMODULIN [Suspect]
     Active Substance: TREPROSTINIL
     Indication: PULMONARY ARTERIAL HYPERTENSION
     Dosage: UNK, CONTINUING
     Route: 041
     Dates: start: 20160623
  4. OPSITE [Suspect]
     Active Substance: POLYURETHANE
     Indication: INFECTION PROPHYLAXIS
     Dosage: UNK
     Route: 061
  5. ADCIRCA [Concomitant]
     Active Substance: TADALAFIL
     Indication: PULMONARY ARTERIAL HYPERTENSION
     Dosage: UNK
     Route: 065

REACTIONS (6)
  - Injection site swelling [Unknown]
  - Device issue [Unknown]
  - Injection site urticaria [Not Recovered/Not Resolved]
  - Dermatitis contact [Unknown]
  - Injection site rash [Unknown]
  - Injection site irritation [Unknown]

NARRATIVE: CASE EVENT DATE: 20201219
